FAERS Safety Report 5913245-6 (Version None)
Quarter: 2008Q4

REPORT INFORMATION
  Report Type: 
  Country: None (occurrence: None)
  Receive Date: 20081009
  Receipt Date: 20081003
  Transmission Date: 20090506
  Serious: Yes (Hospitalization)
  Sender: FDA-Public Use
  Company Number: US-BRISTOL-MYERS SQUIBB COMPANY-14357982

PATIENT
  Age: 49 Year
  Sex: Male
  Weight: 64 kg

DRUGS (3)
  1. ERBITUX [Suspect]
     Indication: HEAD AND NECK CANCER
     Dosage: THERAPY START DATE 26-AUG-2008;(400MG/M2)LOADING DOSE: WEEKLY 250MG/M2
     Dates: start: 20080923, end: 20080923
  2. CISPLATIN [Suspect]
     Indication: HEAD AND NECK CANCER
     Dosage: THERAPY START DATE 26-AUG-2008.(100MG/M2) DAY 1 AND 22.
     Dates: start: 20080923, end: 20080923
  3. RADIATION THERAPY [Suspect]
     Indication: HEAD AND NECK CANCER
     Dosage: THERAPY STARTED ON 26-AUG-2008..1 DF=52GY; # OF FRACTIONS=26; # OF ELAPSED DAYS;29
     Dates: start: 20080923, end: 20080923

REACTIONS (7)
  - ANOREXIA [None]
  - DEHYDRATION [None]
  - DYSPHAGIA [None]
  - FATIGUE [None]
  - NAUSEA [None]
  - OESOPHAGITIS [None]
  - SEPSIS [None]
